FAERS Safety Report 24894683 (Version 3)
Quarter: 2025Q1

REPORT INFORMATION
  Report Type: Spontaneous
  Country: US (occurrence: US)
  Receive Date: 20250128
  Receipt Date: 20250327
  Transmission Date: 20250409
  Serious: Yes (Life-Threatening)
  Sender: UCB
  Company Number: US-UCBSA-2024062874

PATIENT
  Sex: Male
  Weight: 65 kg

DRUGS (2)
  1. ZILBRYSQ [Suspect]
     Active Substance: ZILUCOPLAN
     Indication: Myasthenia gravis
     Dosage: 23 MILLIGRAM, ONCE DAILY (QD)
     Route: 058
     Dates: start: 20241008
  2. CEFTRIAXONE SODIUM [Suspect]
     Active Substance: CEFTRIAXONE SODIUM
     Indication: Product used for unknown indication

REACTIONS (3)
  - Liver disorder [Not Recovered/Not Resolved]
  - Staphylococcal infection [Unknown]
  - Drug ineffective [Unknown]

NARRATIVE: CASE EVENT DATE: 20240101
